FAERS Safety Report 17837445 (Version 1)
Quarter: 2020Q2

REPORT INFORMATION
  Report Type: Spontaneous
  Country: US (occurrence: US)
  Receive Date: 20200529
  Receipt Date: 20200529
  Transmission Date: 20200714
  Serious: No
  Sender: FDA-Public Use
  Company Number: US-ELI_LILLY_AND_COMPANY-US202005008006

PATIENT
  Age: 57 Year
  Sex: Female

DRUGS (4)
  1. GLIPIZIDE. [Concomitant]
     Active Substance: GLIPIZIDE
     Indication: TYPE 2 DIABETES MELLITUS
     Dosage: 10 MG, DAILY
  2. HUMULIN 70/30 [Suspect]
     Active Substance: INSULIN HUMAN
     Indication: TYPE 2 DIABETES MELLITUS
     Dosage: 20 U, EACH MORNING
     Route: 058
     Dates: start: 20200508
  3. HUMULIN 70/30 [Suspect]
     Active Substance: INSULIN HUMAN
     Dosage: 22 U, DAILY(AT NIGHT)
     Route: 058
     Dates: start: 20200508
  4. HUMULIN 70/30 [Suspect]
     Active Substance: INSULIN HUMAN
     Dosage: UNK UNK, UNKNOWN
     Route: 065

REACTIONS (6)
  - Dizziness [Unknown]
  - Memory impairment [Unknown]
  - Blood glucose increased [Unknown]
  - Product dose omission [Unknown]
  - Nausea [Unknown]
  - Fatigue [Unknown]

NARRATIVE: CASE EVENT DATE: 20200520
